FAERS Safety Report 5708783-5 (Version None)
Quarter: 2008Q2

REPORT INFORMATION
  Report Type: 
  Country: None (occurrence: None)
  Receive Date: 20080417
  Receipt Date: 20080408
  Transmission Date: 20081010
  Serious: Yes (Hospitalization, Disabling)
  Sender: FDA-Public Use
  Company Number: AU-MERCK-0803AUS00022

PATIENT
  Age: 43 Year
  Sex: Female
  Weight: 61 kg

DRUGS (10)
  1. EMEND [Suspect]
     Indication: PROPHYLAXIS OF NAUSEA AND VOMITING
     Route: 048
     Dates: start: 20080206, end: 20080206
  2. EMEND [Suspect]
     Route: 048
     Dates: start: 20080227, end: 20080227
  3. EMEND [Suspect]
     Route: 048
     Dates: start: 20080208, end: 20080208
  4. EMEND [Suspect]
     Route: 048
     Dates: start: 20080207, end: 20080207
  5. EMEND [Suspect]
     Route: 048
     Dates: start: 20080229, end: 20080229
  6. EMEND [Suspect]
     Route: 048
     Dates: start: 20080228, end: 20080228
  7. METOCLOPRAMIDE HYDROCHLORIDE [Concomitant]
     Route: 065
  8. DEXAMETHASONE [Concomitant]
     Route: 048
  9. ONDANSETRON HYDROCHLORIDE [Concomitant]
     Route: 065
  10. CYCLOPHOSPHAMIDE AND EPIRUBICIN HYDROCHLORIDE AND FLUOROURACIL [Concomitant]
     Indication: BREAST CANCER
     Route: 065
     Dates: start: 20080206, end: 20080206

REACTIONS (1)
  - FLANK PAIN [None]
